FAERS Safety Report 8622267-6 (Version None)
Quarter: 2012Q3

REPORT INFORMATION
  Report Type: 
  Country: None (occurrence: None)
  Receive Date: 20120827
  Receipt Date: 20120815
  Transmission Date: 20120928
  Serious: Yes (Other)
  Sender: FDA-Public Use
  Company Number: CO-AMGEN-COLSP2012036662

PATIENT
  Age: 68 Year
  Sex: Male

DRUGS (9)
  1. LOSARTAN POTASSIUM [Concomitant]
     Indication: HYPERTENSION
     Dosage: 50 MG 1 TABLET DAILY ORALLY
     Route: 048
  2. DORIXINA                           /00729301/ [Concomitant]
     Indication: INFLAMMATION
     Dosage: 1 TABLET PER DAY (NIGHT) ORALLY
     Route: 048
  3. ENBREL [Suspect]
     Indication: ANKYLOSING SPONDYLITIS
     Dosage: 50 MG EVERY 8 DAYS
     Route: 058
     Dates: start: 20120522
  4. MOBIC [Concomitant]
     Indication: INFLAMMATION
     Dosage: 15 MG, 1 TABLET DAILY ORALLY
     Route: 048
  5. GALVUS [Concomitant]
     Indication: TYPE 2 DIABETES MELLITUS
     Dosage: 50MG/1,000MG TWICE PER DAY ORALLY
     Route: 048
  6. ZOLPIDEM [Concomitant]
     Indication: SLEEP DISORDER
     Dosage: 1 TABLET PER DAY (NIGHT) ORALLY
     Route: 048
  7. MEDROL [Concomitant]
     Indication: INFLAMMATION
     Dosage: 1 TABLET ONCE A DAY ORALLY
     Route: 048
  8. AMLODIPINE                         /00972402/ [Concomitant]
     Indication: HYPERTENSION
     Dosage: 1 TABLET DAILY ORALLY
     Route: 048
  9. DORIXINA                           /00729301/ [Concomitant]
     Indication: PAIN
     Dosage: UNK

REACTIONS (2)
  - SPONDYLITIS [None]
  - ANAL FISTULA [None]
